FAERS Safety Report 19433215 (Version 1)
Quarter: 2021Q2

REPORT INFORMATION
  Report Type: Report from Study
  Country: IT (occurrence: IT)
  Receive Date: 20210618
  Receipt Date: 20210618
  Transmission Date: 20210717
  Serious: Yes (Other)
  Sender: FDA-Public Use
  Company Number: IT-AUROBINDO-AUR-APL-2021-025445

PATIENT
  Age: 93 Year
  Sex: Female

DRUGS (11)
  1. CITALOPRAM [Suspect]
     Active Substance: CITALOPRAM HYDROBROMIDE
     Indication: COVID-19
     Dosage: UNK
     Route: 065
  2. HYDROXYCHLOROQUINE [Interacting]
     Active Substance: HYDROXYCHLOROQUINE
     Dosage: 400 MILLIGRAM, DAILY
     Route: 065
  3. HYDROXYCHLOROQUINE [Interacting]
     Active Substance: HYDROXYCHLOROQUINE
     Indication: COVID-19
     Dosage: 800 MILLIGRAM(FIRST DAY)
     Route: 065
  4. LEVOTHYROXINE. [Concomitant]
     Active Substance: LEVOTHYROXINE
     Indication: COVID-19
     Dosage: UNK
     Route: 065
  5. CEFTRIAXONE. [Concomitant]
     Active Substance: CEFTRIAXONE
     Indication: COVID-19
     Dosage: UNK
     Route: 065
  6. AZITHROMYCIN ANHYDROUS. [Concomitant]
     Active Substance: AZITHROMYCIN ANHYDROUS
     Dosage: 250 MILLIGRAM, DAILY
     Route: 065
  7. SIMVASTATIN. [Concomitant]
     Active Substance: SIMVASTATIN
     Indication: COVID-19
     Dosage: UNK
     Route: 065
  8. BROMAZEPAM [Concomitant]
     Active Substance: BROMAZEPAM
     Indication: COVID-19
     Dosage: UNK
     Route: 065
  9. ENOXAPARIN [Concomitant]
     Active Substance: ENOXAPARIN
     Indication: COVID-19
     Dosage: UNK
     Route: 065
  10. TRAZODONE [Concomitant]
     Active Substance: TRAZODONE HYDROCHLORIDE
     Indication: COVID-19
     Dosage: UNK
     Route: 065
  11. AZITHROMYCIN ANHYDROUS. [Concomitant]
     Active Substance: AZITHROMYCIN ANHYDROUS
     Indication: COVID-19
     Dosage: 500 MILLIGRAM(FIRST DAY)
     Route: 065

REACTIONS (3)
  - Off label use [Unknown]
  - Electrocardiogram QT prolonged [Recovering/Resolving]
  - Drug interaction [Unknown]
